FAERS Safety Report 6979616-4 (Version None)
Quarter: 2010Q3

REPORT INFORMATION
  Report Type: 
  Country: None (occurrence: None)
  Receive Date: 20100910
  Receipt Date: 20100910
  Transmission Date: 20110219
  Serious: Yes (Life-Threatening, Hospitalization)
  Sender: FDA-Public Use
  Company Number: None

PATIENT
  Age: 76 Year
  Sex: Male
  Weight: 81.6 kg

DRUGS (2)
  1. ENOXAPARIN SODIUM [Suspect]
     Indication: DEEP VEIN THROMBOSIS
     Dosage: 80 MG BID SQ
     Route: 058
     Dates: start: 20100704, end: 20100707
  2. ENOXAPARIN SODIUM [Suspect]
     Indication: PULMONARY EMBOLISM
     Dosage: 80 MG BID SQ
     Route: 058
     Dates: start: 20100704, end: 20100707

REACTIONS (3)
  - HAEMOGLOBIN DECREASED [None]
  - HAEMORRHAGE [None]
  - RETROPERITONEAL HAEMATOMA [None]
